FAERS Safety Report 10964853 (Version 1)
Quarter: 2015Q1

REPORT INFORMATION
  Report Type: Spontaneous
  Country: US (occurrence: US)
  Receive Date: 20150330
  Receipt Date: 20150330
  Transmission Date: 20150721
  Serious: No
  Sender: FDA-Public Use
  Company Number: US-TEVA-488980USA

PATIENT
  Sex: Male

DRUGS (2)
  1. WARFARIN [Suspect]
     Active Substance: WARFARIN
     Dosage: 3.5714 MILLIGRAM DAILY;
     Route: 048
  2. WARFARIN [Suspect]
     Active Substance: WARFARIN
     Dosage: .7143 MILLIGRAM DAILY;
     Route: 048

REACTIONS (1)
  - International normalised ratio increased [Unknown]
